FAERS Safety Report 24859493 (Version 2)
Quarter: 2025Q3

REPORT INFORMATION
  Report Type: Spontaneous
  Country: US (occurrence: US)
  Receive Date: 20250119
  Receipt Date: 20250804
  Transmission Date: 20251020
  Serious: No
  Sender: BIOGEN
  Company Number: US-BIOGEN-2025BI01297299

PATIENT
  Age: 29 Year
  Sex: Female

DRUGS (1)
  1. SKYCLARYS [Suspect]
     Active Substance: OMAVELOXOLONE
     Indication: Product used for unknown indication
     Route: 050
     Dates: start: 20240913, end: 202501

REACTIONS (2)
  - Myalgia [Not Recovered/Not Resolved]
  - Back pain [Not Recovered/Not Resolved]

NARRATIVE: CASE EVENT DATE: 20250101
